FAERS Safety Report 7209107-7 (Version None)
Quarter: 2011Q1

REPORT INFORMATION
  Report Type: 
  Country: None (occurrence: None)
  Receive Date: 20110104
  Receipt Date: 20101221
  Transmission Date: 20110831
  Serious: No
  Sender: FDA-Public Use
  Company Number: US-ROXANE LABORATORIES, INC.-2010-RO-01720RO

PATIENT
  Sex: Male

DRUGS (3)
  1. OXYMORPHONE HYDROCHLORIDE [Suspect]
     Indication: SPINAL COLUMN STENOSIS
     Dosage: 40 MG
     Route: 048
     Dates: start: 20101001
  2. OXYMORPHONE HYDROCHLORIDE [Suspect]
     Indication: BURSITIS
  3. OXYMORPHONE HYDROCHLORIDE [Suspect]
     Indication: MUSCLE INJURY

REACTIONS (4)
  - PAIN [None]
  - WRONG TECHNIQUE IN DRUG USAGE PROCESS [None]
  - PAIN IN EXTREMITY [None]
  - ABDOMINAL PAIN UPPER [None]
